FAERS Safety Report 8185458 (Version 2)
Quarter: 2012Q4

REPORT INFORMATION
  Report Type: 
  Country: US (occurrence: US)
  Receive Date: 20111018
  Receipt Date: 20120921
  Transmission Date: 20130627
  Serious: No
  Sender: FDA-Public Use
  Company Number: US-ASTRAZENECA-2011SE41938

PATIENT
  Age: 58 Year
  Sex: Female

DRUGS (2)
  1. SYMBICORT PMDI [Suspect]
     Dosage: 160/4.5 MCG DAILY
     Route: 055
  2. NEXIUM [Suspect]
     Route: 048

REACTIONS (2)
  - Condition aggravated [Unknown]
  - Pain [Unknown]
